FAERS Safety Report 21419080 (Version 6)
Quarter: 2025Q2

REPORT INFORMATION
  Report Type: Spontaneous
  Country: ES (occurrence: ES)
  Receive Date: 20221006
  Receipt Date: 20250611
  Transmission Date: 20250717
  Serious: Yes (Other)
  Sender: PFIZER
  Company Number: ES-PFIZER INC-PV202200075812

PATIENT
  Age: 66 Year
  Sex: Male

DRUGS (11)
  1. DOCETAXEL [Suspect]
     Active Substance: DOCETAXEL
  2. CARBOPLATIN [Suspect]
     Active Substance: CARBOPLATIN
  3. ENZALUTAMIDE [Suspect]
     Active Substance: ENZALUTAMIDE
     Indication: Prostate cancer metastatic
  4. ETOPOSIDE [Suspect]
     Active Substance: ETOPOSIDE
  5. ABIRATERONE [Suspect]
     Active Substance: ABIRATERONE
  6. CYCLOPHOSPHAMIDE [Suspect]
     Active Substance: CYCLOPHOSPHAMIDE
     Indication: Prostate cancer metastatic
  7. BISOPROLOL FUMARATE [Concomitant]
     Active Substance: BISOPROLOL FUMARATE
  8. DEXAMETHASONE [Concomitant]
     Active Substance: DEXAMETHASONE
  9. ZOLPIDEM [Concomitant]
     Active Substance: ZOLPIDEM TARTRATE
  10. OMEPRAZOLE [Concomitant]
     Active Substance: OMEPRAZOLE
  11. FENTANYL CITRATE [Concomitant]
     Active Substance: FENTANYL CITRATE

REACTIONS (2)
  - Renal impairment [Unknown]
  - Malignant neoplasm progression [Unknown]
